FAERS Safety Report 13399578 (Version 1)
Quarter: 2017Q2

REPORT INFORMATION
  Report Type: Spontaneous
  Country: US (occurrence: US)
  Receive Date: 20170403
  Receipt Date: 20170403
  Transmission Date: 20170830
  Serious: Yes (Other)
  Sender: FDA-Public Use
  Company Number: None

PATIENT
  Age: 71 Year
  Sex: Male
  Weight: 77.85 kg

DRUGS (20)
  1. SKELAXIN [Concomitant]
     Active Substance: METAXALONE
  2. CRESTOR [Concomitant]
     Active Substance: ROSUVASTATIN CALCIUM
  3. ACETAMINOPHEN. [Concomitant]
     Active Substance: ACETAMINOPHEN
  4. ASPIRIN. [Concomitant]
     Active Substance: ASPIRIN
  5. NORTRIPTYLINE [Concomitant]
     Active Substance: NORTRIPTYLINE
  6. NEURONTIN [Concomitant]
     Active Substance: GABAPENTIN
  7. CITRUCEL [Concomitant]
     Active Substance: METHYLCELLULOSE (4000 MPA.S)
  8. VITAMIN C [Concomitant]
     Active Substance: ASCORBIC ACID
  9. CLOTRIMAZOLE. [Suspect]
     Active Substance: CLOTRIMAZOLE
     Indication: FUNGAL INFECTION
     Dosage: 40 TABLET(S) FIVE TIMES A DAY PLACED ON TONGUE
     Dates: start: 20170215, end: 20170220
  10. NITROGLYCERIN. [Concomitant]
     Active Substance: NITROGLYCERIN
  11. MULTIVITAMIN [Concomitant]
     Active Substance: VITAMINS
  12. VITAMIN E [Concomitant]
     Active Substance: .ALPHA.-TOCOPHEROL
  13. CARVEDILOL (COREG CR) [Concomitant]
  14. KLONOPIN [Concomitant]
     Active Substance: CLONAZEPAM
  15. O2 [Concomitant]
  16. FLONASE [Concomitant]
     Active Substance: FLUTICASONE PROPIONATE
  17. OSTEOBI-FLEX [Concomitant]
  18. FOLIC ACID (FOLVEE) [Concomitant]
  19. VITAMIN D [Concomitant]
     Active Substance: CHOLECALCIFEROL
  20. CLARINEX [Concomitant]
     Active Substance: DESLORATADINE

REACTIONS (3)
  - Saliva altered [None]
  - Ageusia [None]
  - Tongue discomfort [None]

NARRATIVE: CASE EVENT DATE: 20170215
